FAERS Safety Report 19784491 (Version 2)
Quarter: 2022Q3

REPORT INFORMATION
  Report Type: Report from Study
  Country: US (occurrence: None)
  Receive Date: 20210903
  Receipt Date: 20220809
  Transmission Date: 20221026
  Serious: Yes (Hospitalization, Other)
  Sender: FDA-Public Use
  Company Number: US-ROCHE-2900196

PATIENT
  Age: 65 Year
  Sex: Female
  Weight: 67.5 kg

DRUGS (4)
  1. PIRFENIDONE [Suspect]
     Active Substance: PIRFENIDONE
     Indication: Non-small cell lung cancer
     Dosage: 267 MG CAPSULES ONE THREE TIMES A DAY FOR DAYS 1-7 AND TWO CAPSULES THREE TIMES A DAY FOR DAY 8 ONWA
     Route: 065
  2. PIRFENIDONE [Suspect]
     Active Substance: PIRFENIDONE
     Indication: Non-small cell lung cancer
  3. CARBOPLATIN [Suspect]
     Active Substance: CARBOPLATIN
     Indication: Non-small cell lung cancer
     Dosage: ON 13/FEB/2018 SHE TAKE MOST RECENT DOSE.
     Route: 065
  4. PEMETREXED [Suspect]
     Active Substance: PEMETREXED
     Indication: Non-small cell lung cancer
     Dosage: ON 13/FEB/2018 SHE TAKE MOST RECENT DOSE.
     Route: 065

REACTIONS (3)
  - Abdominal pain [Recovering/Resolving]
  - Dehydration [Recovered/Resolved]
  - Disorientation [Unknown]

NARRATIVE: CASE EVENT DATE: 20180228
